FAERS Safety Report 6836935-X (Version None)
Quarter: 2010Q3

REPORT INFORMATION
  Report Type: 
  Country: None (occurrence: None)
  Receive Date: 20100713
  Receipt Date: 20100616
  Transmission Date: 20110219
  Serious: Yes (Death, Hospitalization)
  Sender: FDA-Public Use
  Company Number: PHHY2010FR40106

PATIENT
  Sex: Female

DRUGS (1)
  1. CGP 57148B T35717+ [Suspect]
     Dosage: UNK
     Dates: end: 20071105

REACTIONS (10)
  - CONFUSIONAL STATE [None]
  - DEATH [None]
  - EXTREMITY NECROSIS [None]
  - GENERAL PHYSICAL HEALTH DETERIORATION [None]
  - NECROSIS ISCHAEMIC [None]
  - NEOPLASM [None]
  - OEDEMA PERIPHERAL [None]
  - SLEEP DISORDER [None]
  - SOMNOLENCE [None]
  - SUPERIOR VENA CAVAL OCCLUSION [None]
